FAERS Safety Report 13454491 (Version 1)
Quarter: 2017Q2

REPORT INFORMATION
  Report Type: Spontaneous
  Country: US (occurrence: US)
  Receive Date: 20170418
  Receipt Date: 20170418
  Transmission Date: 20170830
  Serious: No
  Sender: FDA-Public Use
  Company Number: US-ALLERGAN-1706402US

PATIENT
  Sex: Female

DRUGS (1)
  1. LUMIGAN [Suspect]
     Active Substance: BIMATOPROST
     Indication: PRODUCT USED FOR UNKNOWN INDICATION
     Dosage: UNK UNK, UNKNOWN
     Route: 047

REACTIONS (6)
  - Conjunctivitis [Unknown]
  - Eye irritation [Unknown]
  - Blepharitis [Unknown]
  - Lacrimation increased [Unknown]
  - Retinal oedema [Recovered/Resolved]
  - Eye pruritus [Recovered/Resolved]
